FAERS Safety Report 5700794-9 (Version None)
Quarter: 2008Q2

REPORT INFORMATION
  Report Type: 
  Country: None (occurrence: None)
  Receive Date: 20080407
  Receipt Date: 20080324
  Transmission Date: 20081010
  Serious: Yes (Hospitalization)
  Sender: FDA-Public Use
  Company Number: 2006BI018881

PATIENT
  Sex: Female
  Weight: 48.0813 kg

DRUGS (1)
  1. AVONEX [Suspect]
     Indication: MULTIPLE SCLEROSIS
     Dosage: 30 UG; QW; IM
     Route: 030
     Dates: start: 20040730

REACTIONS (5)
  - DISEASE PROGRESSION [None]
  - FAILURE TO THRIVE [None]
  - MULTIPLE SCLEROSIS [None]
  - OSTEOPOROSIS [None]
  - SPINAL DEFORMITY [None]
